FAERS Safety Report 5902721-8 (Version None)
Quarter: 2008Q3

REPORT INFORMATION
  Report Type: 
  Country: None (occurrence: None)
  Receive Date: 20080929
  Receipt Date: 20080929
  Transmission Date: 20090109
  Serious: Yes (Other)
  Sender: FDA-Public Use
  Company Number: None

PATIENT
  Sex: Female
  Weight: 61.6892 kg

DRUGS (1)
  1. MICARDIS [Suspect]
     Dosage: 40 MG 1 A DAY

REACTIONS (2)
  - CONDITION AGGRAVATED [None]
  - TINNITUS [None]
